FAERS Safety Report 9308860 (Version 2)
Quarter: 2013Q2

REPORT INFORMATION
  Report Type: Spontaneous
  Country: US (occurrence: US)
  Receive Date: 20130524
  Receipt Date: 20130618
  Transmission Date: 20140414
  Serious: No
  Sender: FDA-Public Use
  Company Number: US-009507513-1305USA013150

PATIENT
  Sex: Female

DRUGS (4)
  1. SINGULAIR [Suspect]
     Indication: ASTHMA
     Dosage: 10 MG, QD
     Route: 048
     Dates: start: 20130410
  2. SINGULAIR [Suspect]
     Indication: RHINITIS SEASONAL
  3. MONTELUKAST SODIUM [Suspect]
     Route: 048
  4. SPIRIVA [Concomitant]

REACTIONS (3)
  - Wheezing [Unknown]
  - Cough [Unknown]
  - Dyspnoea [Unknown]
